FAERS Safety Report 16464187 (Version 1)
Quarter: 2019Q3

REPORT INFORMATION
  Report Type: Spontaneous
  Country: US (occurrence: US)
  Receive Date: 20190620
  Receipt Date: 20190620
  Transmission Date: 20191004
  Serious: Yes (Life-Threatening, Hospitalization, Other)
  Sender: FDA-Public Use
  Company Number: None

PATIENT
  Age: 24 Year
  Sex: Female
  Weight: 112.95 kg

DRUGS (1)
  1. LAMOTRIGINE. [Suspect]
     Active Substance: LAMOTRIGINE
     Indication: DEPRESSION
     Route: 048
     Dates: start: 20171128, end: 20181228

REACTIONS (7)
  - Mood altered [None]
  - Cushingoid [None]
  - Alopecia [None]
  - Haemophagocytic lymphohistiocytosis [None]
  - Blood glucose abnormal [None]
  - Kyphosis [None]
  - Hallucination, auditory [None]

NARRATIVE: CASE EVENT DATE: 20181228
